FAERS Safety Report 9283546 (Version 1)
Quarter: 2013Q2

REPORT INFORMATION
  Report Type: Spontaneous
  Country: US (occurrence: US)
  Receive Date: 20130510
  Receipt Date: 20130510
  Transmission Date: 20140414
  Serious: Yes (Hospitalization)
  Sender: FDA-Public Use
  Company Number: US-GLAXOSMITHKLINE-A1016401A

PATIENT
  Age: 56 Year
  Sex: Female

DRUGS (8)
  1. TYKERB [Suspect]
     Indication: BREAST CANCER
     Dosage: 1000MG PER DAY
  2. FENTANYL [Concomitant]
     Indication: PAIN
     Route: 062
  3. ZOFRAN [Concomitant]
  4. DIAZEPAM [Concomitant]
  5. AMBIEN [Concomitant]
  6. LEXAPRO [Concomitant]
  7. LOMOTIL [Concomitant]
  8. NEURONTIN [Concomitant]

REACTIONS (1)
  - Diarrhoea [Recovering/Resolving]
